FAERS Safety Report 18434406 (Version 1)
Quarter: 2020Q4

REPORT INFORMATION
  Report Type: Not Available
  Country: US (occurrence: US)
  Receive Date: 20201027
  Receipt Date: 20201027
  Transmission Date: 20210114
  Serious: No
  Sender: FDA-Public Use
  Company Number: US-FRESENIUS KABI-FK202011261

PATIENT
  Sex: Female

DRUGS (1)
  1. OCTREOTIDE ACETATE INJECTION [Suspect]
     Active Substance: OCTREOTIDE ACETATE
     Indication: COLITIS ULCERATIVE
     Route: 058
     Dates: start: 202008

REACTIONS (2)
  - Drug ineffective [Unknown]
  - Diarrhoea [Unknown]
